FAERS Safety Report 24455943 (Version 2)
Quarter: 2024Q4

REPORT INFORMATION
  Report Type: Report from Study
  Country: TR (occurrence: TR)
  Receive Date: 20241017
  Receipt Date: 20241018
  Transmission Date: 20250115
  Serious: No
  Sender: ROCHE
  Company Number: TR-ROCHE-3501034

PATIENT

DRUGS (11)
  1. RITUXIMAB [Suspect]
     Active Substance: RITUXIMAB
     Indication: Rheumatoid arthritis
     Route: 065
  2. TOCILIZUMAB [Suspect]
     Active Substance: TOCILIZUMAB
     Indication: Rheumatoid arthritis
     Route: 065
  3. ETANERCEPT [Suspect]
     Active Substance: ETANERCEPT
     Indication: Rheumatoid arthritis
     Route: 065
  4. ABATACEPT [Suspect]
     Active Substance: ABATACEPT
     Indication: Rheumatoid arthritis
     Route: 065
  5. TOFACITINIB [Suspect]
     Active Substance: TOFACITINIB
     Indication: Rheumatoid arthritis
     Route: 065
  6. BARICITINIB [Suspect]
     Active Substance: BARICITINIB
     Indication: Rheumatoid arthritis
     Route: 065
  7. LEFLUNOMIDE [Suspect]
     Active Substance: LEFLUNOMIDE
     Indication: Rheumatoid arthritis
     Route: 065
  8. ADALIMUMAB [Suspect]
     Active Substance: ADALIMUMAB
     Indication: Rheumatoid arthritis
     Route: 065
  9. INFLIXIMAB [Suspect]
     Active Substance: INFLIXIMAB
     Indication: Rheumatoid arthritis
     Route: 065
  10. CERTOLIZUMAB [Suspect]
     Active Substance: CERTOLIZUMAB
     Indication: Rheumatoid arthritis
     Route: 065
  11. GOLIMUMAB [Suspect]
     Active Substance: GOLIMUMAB
     Indication: Rheumatoid arthritis
     Route: 065

REACTIONS (7)
  - Chronic kidney disease [Unknown]
  - Systemic infection [Unknown]
  - Hypersensitivity [Unknown]
  - Tuberculosis [Unknown]
  - Pulmonary mass [Unknown]
  - Pleural effusion [Unknown]
  - Drug ineffective [Unknown]
